FAERS Safety Report 23198424 (Version 3)
Quarter: 2023Q4

REPORT INFORMATION
  Report Type: Spontaneous
  Country: US (occurrence: US)
  Receive Date: 20231117
  Receipt Date: 20231222
  Transmission Date: 20240110
  Serious: Yes (Life-Threatening, Hospitalization, Other)
  Sender: FDA-Public Use
  Company Number: US-PFIZER INC-202300366009

PATIENT
  Age: 85 Year
  Sex: Female

DRUGS (1)
  1. PAXLOVID [Suspect]
     Active Substance: NIRMATRELVIR\RITONAVIR
     Indication: COVID-19 treatment
     Dosage: 20X150, 10X100
     Dates: start: 20231013

REACTIONS (10)
  - Atrial fibrillation [Not Recovered/Not Resolved]
  - Cardiac failure congestive [Not Recovered/Not Resolved]
  - Disease recurrence [Not Recovered/Not Resolved]
  - Oedema [Not Recovered/Not Resolved]
  - Breathing-related sleep disorder [Unknown]
  - Somnolence [Unknown]
  - Gait disturbance [Unknown]
  - Amnesia [Unknown]
  - Skin fissures [Unknown]
  - Asthenia [Unknown]

NARRATIVE: CASE EVENT DATE: 20231031
